FAERS Safety Report 17036024 (Version 2)
Quarter: 2020Q1

REPORT INFORMATION
  Report Type: Report from Study
  Country: CO (occurrence: CO)
  Receive Date: 20191115
  Receipt Date: 20200312
  Transmission Date: 20200409
  Serious: Yes (Hospitalization)
  Sender: FDA-Public Use
  Company Number: CO-BRISTOL-MYERS SQUIBB COMPANY-BMS-2019-016693

PATIENT
  Age: 64 Year
  Sex: Female
  Weight: 89 kg

DRUGS (2)
  1. METHYLPREDNISOLONE. [Suspect]
     Active Substance: METHYLPREDNISOLONE
     Indication: INFLAMMATION
     Dosage: 500 MILLIGRAM
     Route: 065
  2. ABATACEPT [Suspect]
     Active Substance: ABATACEPT
     Indication: RHEUMATOID ARTHRITIS
     Dosage: 750 MG, Q4WK
     Route: 042
     Dates: start: 20171115

REACTIONS (9)
  - Gastritis [Recovered/Resolved]
  - Blood pressure increased [Recovered/Resolved]
  - Arthralgia [Recovering/Resolving]
  - Pain in extremity [Recovering/Resolving]
  - Headache [Unknown]
  - Dry eye [Recovering/Resolving]
  - Vomiting [Unknown]
  - Weight increased [Unknown]
  - Inflammation [Recovered/Resolved]

NARRATIVE: CASE EVENT DATE: 20171115
